FAERS Safety Report 18922753 (Version 1)
Quarter: 2021Q1

REPORT INFORMATION
  Report Type: Spontaneous
  Country: IT (occurrence: IT)
  Receive Date: 20210222
  Receipt Date: 20210222
  Transmission Date: 20210420
  Serious: Yes (Other)
  Sender: FDA-Public Use
  Company Number: IT-MYLANLABS-2021M1010846

PATIENT
  Sex: Male

DRUGS (4)
  1. ADEMETIONINE [Suspect]
     Active Substance: ADEMETIONINE
     Indication: ASTHENIA
     Dosage: 400 MILLIGRAM, QD
     Route: 065
  2. FOLIC ACID. [Suspect]
     Active Substance: FOLIC ACID
     Indication: ASTHENIA
     Dosage: 5 MILLIGRAM, QD
     Route: 065
  3. ESCITALOPRAM [Suspect]
     Active Substance: ESCITALOPRAM OXALATE
     Indication: MAJOR DEPRESSION
     Dosage: 10 MILLIGRAM, QD
     Route: 065
  4. GRIFFONIA SIMPLICIFOLIA WHOLE [Suspect]
     Active Substance: GRIFFONIA SIMPLICIFOLIA WHOLE\HERBALS
     Indication: ASTHENIA
     Dosage: UNK
     Route: 065

REACTIONS (2)
  - Drug ineffective [Unknown]
  - Off label use [Unknown]
